FAERS Safety Report 5978101-6 (Version None)
Quarter: 2008Q4

REPORT INFORMATION
  Report Type: 
  Country: None (occurrence: None)
  Receive Date: 20081204
  Receipt Date: 20081121
  Transmission Date: 20090506
  Serious: Yes (Hospitalization)
  Sender: FDA-Public Use
  Company Number: GB-AMGEN-US320902

PATIENT
  Sex: Male
  Weight: 118 kg

DRUGS (5)
  1. ENBREL [Suspect]
     Indication: PSORIATIC ARTHROPATHY
     Route: 058
     Dates: start: 20080801
  2. PROZAC [Concomitant]
     Dosage: 20 MG (FREQUENCY UNKNOWN)
     Route: 048
  3. ATENOLOL [Concomitant]
     Dosage: 25 MG (FREQUENCY UNKNOWN)
     Route: 048
  4. SIMVASTATIN [Concomitant]
     Dosage: 40 MG (FREQUENCY UNKNOWN)
     Route: 048
  5. LANSOPRAZOLE [Concomitant]
     Dosage: 30 MG (FREQUENCY UNKNOWN)
     Route: 048

REACTIONS (2)
  - NONSPECIFIC REACTION [None]
  - PULMONARY EMBOLISM [None]
